FAERS Safety Report 4949437-2 (Version None)
Quarter: 2006Q1

REPORT INFORMATION
  Report Type: 
  Country: None (occurrence: None)
  Receive Date: 20060321
  Receipt Date: 20051124
  Transmission Date: 20060701
  Serious: Yes (Other)
  Sender: FDA-Public Use
  Company Number: PHBS2005VE17483

PATIENT
  Age: 61 Year
  Sex: Female

DRUGS (4)
  1. DIOVAN [Suspect]
     Indication: HYPERTENSION
     Dosage: 80 MG, QD
     Route: 048
     Dates: start: 20050201
  2. DICLOFENAC [Suspect]
     Dosage: 1 DF, ONCE/SINGLE
     Route: 048
  3. ASPIRIN [Concomitant]
     Indication: PROMOTION OF PERIPHERAL CIRCULATION
     Dosage: 100 MG, UNK
     Dates: start: 20030201
  4. HIDROSMIN [Concomitant]
     Indication: PROMOTION OF PERIPHERAL CIRCULATION
     Dosage: 2 TABLETS/ DAY
     Route: 048
     Dates: start: 20030201

REACTIONS (10)
  - ABDOMINAL DISTENSION [None]
  - CONVULSION [None]
  - HEAD DISCOMFORT [None]
  - HEADACHE [None]
  - HOT FLUSH [None]
  - HYPERHIDROSIS [None]
  - INFLUENZA [None]
  - LOSS OF CONSCIOUSNESS [None]
  - PARAESTHESIA [None]
  - SYNCOPE [None]
